FAERS Safety Report 16682161 (Version 1)
Quarter: 2019Q3

REPORT INFORMATION
  Report Type: Spontaneous
  Country: HR (occurrence: HR)
  Receive Date: 20190808
  Receipt Date: 20190808
  Transmission Date: 20191004
  Serious: Yes (Other)
  Sender: FDA-Public Use
  Company Number: HR-PFIZER INC-2019333858

PATIENT
  Sex: Female

DRUGS (6)
  1. BROMAZEPAM [Suspect]
     Active Substance: BROMAZEPAM
     Dosage: 45 MG, UNK
     Route: 048
     Dates: start: 20190512, end: 20190512
  2. ATHYRAZOL [Suspect]
     Active Substance: METHIMAZOLE
     Dosage: 110 MG, UNK
     Route: 048
     Dates: start: 20190512, end: 20190512
  3. PERINDOPRIL [Suspect]
     Active Substance: PERINDOPRIL
     Dosage: 120 MG, UNK
     Route: 048
     Dates: start: 20190512, end: 20190512
  4. AMLODIPINE BESILATE [Suspect]
     Active Substance: AMLODIPINE BESYLATE
     Dosage: 150 MG, UNK
     Route: 048
     Dates: start: 20190512, end: 20190512
  5. DIAZEPAM. [Suspect]
     Active Substance: DIAZEPAM
     Dosage: 75 MG, UNK
     Route: 048
     Dates: start: 20190512, end: 20190512
  6. PROPRANOLOL SANDOZ [Suspect]
     Active Substance: PROPRANOLOL HYDROCHLORIDE
     Dosage: 600 MG, UNK
     Route: 048
     Dates: start: 20190512, end: 20190512

REACTIONS (6)
  - Blood pressure decreased [Unknown]
  - Hypotension [Unknown]
  - Somnolence [Unknown]
  - Respiratory rate decreased [Unknown]
  - Intentional overdose [Unknown]
  - Suicide attempt [Unknown]

NARRATIVE: CASE EVENT DATE: 20190512
